FAERS Safety Report 11897744 (Version 2)
Quarter: 2016Q1

REPORT INFORMATION
  Report Type: Report from Study
  Country: US (occurrence: US)
  Receive Date: 20160108
  Receipt Date: 20160229
  Transmission Date: 20160526
  Serious: Yes (Other)
  Sender: FDA-Public Use
  Company Number: PHEH2016US000560

PATIENT
  Sex: Female
  Weight: 58.47 kg

DRUGS (1)
  1. TOBI PODHALER [Suspect]
     Active Substance: TOBRAMYCIN
     Indication: CYSTIC FIBROSIS LUNG
     Dosage: 4 OT, BID
     Route: 048
     Dates: start: 20150622

REACTIONS (2)
  - Staphylococcal infection [Unknown]
  - Chest discomfort [Unknown]
